FAERS Safety Report 7763338-6 (Version None)
Quarter: 2011Q3

REPORT INFORMATION
  Report Type: 
  Country: None (occurrence: None)
  Receive Date: 20110920
  Receipt Date: 20110914
  Transmission Date: 20111222
  Serious: Yes (Life-Threatening, Hospitalization)
  Sender: FDA-Public Use
  Company Number: UA-ASTRAZENECA-2011SE55150

PATIENT
  Age: 17 Year
  Sex: Male

DRUGS (1)
  1. PULMICORT [Suspect]
     Indication: ASTHMA
     Route: 055
     Dates: end: 20110914

REACTIONS (2)
  - BRONCHOSPASM [None]
  - APNOEA [None]
